FAERS Safety Report 8798257 (Version 4)
Quarter: 2013Q2

REPORT INFORMATION
  Report Type: Report from Study
  Country: JP (occurrence: JP)
  Receive Date: 20120920
  Receipt Date: 20130427
  Transmission Date: 20140414
  Serious: Yes (Hospitalization)
  Sender: FDA-Public Use
  Company Number: JP-009507513-1209JPN006340

PATIENT
  Age: 70 Year
  Sex: Female
  Weight: 62 kg

DRUGS (14)
  1. PEGINTRON [Suspect]
     Indication: CHRONIC HEPATITIS C
     Dosage: 1.5 MICROGRAM PER KILOGRAM, UNK
     Route: 058
     Dates: start: 20120824, end: 20120824
  2. PEGINTRON [Suspect]
     Dosage: 1.5 MICROGRAM PER KILOGRAM, QW
     Route: 058
     Dates: start: 20120905
  3. PEGINTRON [Suspect]
     Dosage: 0.75 MICROGRAM PER KILOGRAM, UNK
     Route: 058
     Dates: end: 20121128
  4. REBETOL [Suspect]
     Indication: CHRONIC HEPATITIS C
     Dosage: 600 MG, QD
     Route: 048
     Dates: start: 20120824, end: 20120827
  5. REBETOL [Suspect]
     Dosage: 600 MG, QD
     Route: 048
     Dates: start: 20120902, end: 20120910
  6. REBETOL [Suspect]
     Dosage: 600 MG, QD
     Route: 048
     Dates: start: 20120919, end: 20121128
  7. TELAVIC [Suspect]
     Indication: CHRONIC HEPATITIS C
     Dosage: 2250 MG, QD
     Route: 048
     Dates: start: 20120824, end: 20120827
  8. URSO [Concomitant]
     Indication: CHRONIC HEPATITIS C
     Dosage: 600 MG, QD,FORMULATION:POR
     Route: 048
  9. EPL [Concomitant]
     Indication: LIPID METABOLISM DISORDER
     Dosage: 750 MG, QD,,FORMULATION:POR
     Route: 048
  10. TAKEPRON [Concomitant]
     Indication: GASTRITIS
     Dosage: 30 MG, QD,FORMULATION:POR
     Route: 048
  11. METHYCOBAL [Concomitant]
     Indication: NEUROPATHY PERIPHERAL
     Dosage: 1500 MICROGRAM, QD,FORMULATION:POR
     Route: 048
  12. HALCION [Concomitant]
     Indication: INSOMNIA
     Dosage: 0.25 MG, QD,,FORMULATION:POR
     Route: 048
  13. GRANDAXIN [Concomitant]
     Indication: AUTONOMIC NERVOUS SYSTEM IMBALANCE
     Dosage: 50 MG, QD,FORMULATION:POR
     Route: 048
  14. DIOVAN [Concomitant]
     Indication: HYPERTENSION
     Dosage: 80 MG, QD,FORMULATION:POR
     Route: 048

REACTIONS (1)
  - Renal impairment [Recovering/Resolving]
